FAERS Safety Report 13407126 (Version 1)
Quarter: 2017Q2

REPORT INFORMATION
  Report Type: Spontaneous
  Country: DK (occurrence: DK)
  Receive Date: 20170405
  Receipt Date: 20170405
  Transmission Date: 20170830
  Serious: Yes (Hospitalization, Other)
  Sender: FDA-Public Use
  Company Number: DK-ELI_LILLY_AND_COMPANY-DK201703011765

PATIENT
  Age: 64 Year
  Sex: Male
  Weight: 100 kg

DRUGS (4)
  1. SIMVASTATIN ACTAVIS [Concomitant]
     Active Substance: SIMVASTATIN
     Indication: HYPERCHOLESTEROLAEMIA
     Dosage: UNK, UNKNOWN
     Route: 065
     Dates: start: 2015, end: 20170227
  2. TRULICITY [Suspect]
     Active Substance: DULAGLUTIDE
     Indication: TYPE 2 DIABETES MELLITUS
     Dosage: 1.5 MG, UNKNOWN
     Route: 058
     Dates: start: 20170113, end: 20170301
  3. METFORMIN ACTAVIS [Concomitant]
     Active Substance: METFORMIN HYDROCHLORIDE
     Indication: TYPE 2 DIABETES MELLITUS
     Dosage: UNK, UNKNOWN
     Route: 065
     Dates: start: 2010
  4. RAMIPRIL ACTAVIS [Concomitant]
     Active Substance: RAMIPRIL
     Indication: HYPERTENSION
     Dosage: UNK UNK, UNKNOWN
     Route: 065
     Dates: start: 201506

REACTIONS (4)
  - Cholecystitis acute [Unknown]
  - Pancreatitis acute [Recovered/Resolved]
  - Cholelithiasis [Unknown]
  - Blood glucose increased [Unknown]

NARRATIVE: CASE EVENT DATE: 20170223
